FAERS Safety Report 9428917 (Version 1)
Quarter: 2013Q3

REPORT INFORMATION
  Report Type: Report from Study
  Country: US (occurrence: US)
  Receive Date: 20130730
  Receipt Date: 20130730
  Transmission Date: 20140515
  Serious: No
  Sender: FDA-Public Use
  Company Number: US-ABBOTT-13P-163-1041041-00

PATIENT
  Age: 43 Year
  Sex: Male
  Weight: 68.1 kg

DRUGS (8)
  1. NIASPAN (COATED) [Suspect]
     Indication: VASCULAR GRAFT
     Dosage: AT BEDTIME
     Dates: start: 20130113
  2. TRAMADOL [Concomitant]
     Indication: PRODUCT USED FOR UNKNOWN INDICATION
  3. METAPROLOL [Concomitant]
     Indication: PRODUCT USED FOR UNKNOWN INDICATION
  4. UNKNOWN ANTI DIARRHEAL MEDICATION [Concomitant]
     Indication: DIARRHOEA
  5. WELCHOL [Concomitant]
     Indication: PRODUCT USED FOR UNKNOWN INDICATION
  6. FLOMAX [Concomitant]
     Indication: PRODUCT USED FOR UNKNOWN INDICATION
     Dosage: 1 IN EVENING
  7. UNKNOWN ANTI DEPRESSANT MEDICATION [Concomitant]
     Indication: PRODUCT USED FOR UNKNOWN INDICATION
  8. BENADRYL [Concomitant]
     Indication: PRURITUS

REACTIONS (3)
  - Flushing [Unknown]
  - Pruritus [Not Recovered/Not Resolved]
  - Pruritus [Not Recovered/Not Resolved]
